FAERS Safety Report 9717383 (Version 1)
Quarter: 2013Q4

REPORT INFORMATION
  Report Type: Spontaneous
  Country: US (occurrence: US)
  Receive Date: 20131127
  Receipt Date: 20131127
  Transmission Date: 20140711
  Serious: No
  Sender: FDA-Public Use
  Company Number: US-GILEAD-2008-0019609

PATIENT
  Sex: Female
  Weight: 57.61 kg

DRUGS (32)
  1. LETAIRIS [Suspect]
     Indication: PULMONARY ARTERIAL HYPERTENSION
     Route: 048
     Dates: start: 20080214
  2. REVATIO [Concomitant]
  3. BUMEX [Concomitant]
  4. LISINOPRIL [Concomitant]
  5. FLEXERIL [Concomitant]
  6. CELEBREX [Concomitant]
  7. PERCOCET [Concomitant]
  8. VICODIN [Concomitant]
  9. REFRESH EYE DROPS [Concomitant]
  10. SYNTHROID [Concomitant]
  11. AZATHIOPRINE [Concomitant]
  12. ACTONEL [Concomitant]
  13. FISH OIL [Concomitant]
  14. MEDROL [Concomitant]
  15. AMBIEN CR [Concomitant]
  16. BENADRYL [Concomitant]
  17. IRON [Concomitant]
  18. PROTONIX [Concomitant]
  19. NASACORT [Concomitant]
  20. METHOTREXATE [Concomitant]
  21. PREDNISONE [Concomitant]
  22. NORVASC [Concomitant]
  23. CLONAZEPAM [Concomitant]
  24. FOLIC ACID [Concomitant]
  25. CITRATE OF MAGNESIA [Concomitant]
  26. MIRAPEX [Concomitant]
  27. ASPIRIN [Concomitant]
  28. MULTIVITAMIN [Concomitant]
  29. GLUCOSAMINE/CHONDROTIN [Concomitant]
  30. LEVOXYL [Concomitant]
  31. CALCIUM [Concomitant]
  32. VITAMIN C [Concomitant]

REACTIONS (2)
  - Nasal congestion [Unknown]
  - Nasal discomfort [Unknown]
